FAERS Safety Report 5987740-8 (Version None)
Quarter: 2008Q4

REPORT INFORMATION
  Report Type: 
  Country: None (occurrence: None)
  Receive Date: 20081209
  Receipt Date: 20081201
  Transmission Date: 20090506
  Serious: Yes (Other)
  Sender: FDA-Public Use
  Company Number: US-WYE-H07024908

PATIENT
  Age: 54 Year
  Sex: Female

DRUGS (2)
  1. TEMSIROLIMUS [Suspect]
     Indication: NEOPLASM MALIGNANT
     Route: 042
     Dates: start: 20081104, end: 20081111
  2. BEVACIZUMAB [Suspect]
     Indication: NEOPLASM MALIGNANT
     Dosage: 10MG/KG IV OVER 30-90MINUTES DAY 1 AND DAY 15
     Route: 042
     Dates: start: 20081104, end: 20081104

REACTIONS (2)
  - BLOOD MAGNESIUM DECREASED [None]
  - HYPOMAGNESAEMIA [None]
